FAERS Safety Report 10432197 (Version 1)
Quarter: 2014Q3

REPORT INFORMATION
  Report Type: Spontaneous
  Country: US (occurrence: None)
  Receive Date: 20140815
  Receipt Date: 20140815
  Transmission Date: 20150326
  Serious: No
  Sender: FDA-Public Use
  Company Number: A-US2014-98886

PATIENT
  Age: 64 Year
  Sex: Female

DRUGS (7)
  1. NEXIUM [Concomitant]
     Active Substance: ESOMEPRAZOLE MAGNESIUM
  2. IMURAN [Concomitant]
     Active Substance: AZATHIOPRINE
  3. [LAQUENIL (HYDROXYCHLOROQUINE PHOSPHATE) [Concomitant]
  4. OPSUMIT [Suspect]
     Active Substance: MACITENTAN
     Indication: PULMONARY HYPERTENSION
     Route: 048
     Dates: start: 201401
  5. LISINOPRIL (LISINOPRIL) [Concomitant]
     Active Substance: LISINOPRIL
  6. SILDENAFIL (SILDENAFIL) [Concomitant]
     Active Substance: SILDENAFIL
  7. NORVASC [Concomitant]
     Active Substance: AMLODIPINE BESYLATE

REACTIONS (1)
  - Anaemia [None]

NARRATIVE: CASE EVENT DATE: 201404
